FAERS Safety Report 9641967 (Version 1)
Quarter: 2013Q4

REPORT INFORMATION
  Report Type: Spontaneous
  Country: US (occurrence: US)
  Receive Date: 20131023
  Receipt Date: 20131023
  Transmission Date: 20140711
  Serious: Yes (Hospitalization)
  Sender: FDA-Public Use
  Company Number: US-MYLANLABS-2013S1023082

PATIENT
  Age: 23 Year
  Sex: Male

DRUGS (3)
  1. HYDROMORPHONE [Suspect]
     Route: 065
  2. HYDROMORPHONE [Suspect]
     Dosage: 1MG; REPEATED 30MIN LATER
     Route: 041
  3. FENTANYL [Suspect]
     Dosage: 100 MICROG/H
     Route: 065

REACTIONS (1)
  - Hyperaesthesia [Unknown]
